FAERS Safety Report 10381862 (Version 2)
Quarter: 2014Q3

REPORT INFORMATION
  Report Type: Spontaneous
  Country: US (occurrence: US)
  Receive Date: 20140813
  Receipt Date: 20140813
  Transmission Date: 20150326
  Serious: No
  Sender: FDA-Public Use
  Company Number: US-ASTRAZENECA-2009UW18444

PATIENT
  Age: 71 Year
  Sex: Female
  Weight: 72.6 kg

DRUGS (5)
  1. MORPHINE SULFATE. [Suspect]
     Active Substance: MORPHINE SULFATE
     Route: 065
  2. METOPROLOL SUCCINATE. [Suspect]
     Active Substance: METOPROLOL SUCCINATE
     Indication: BLOOD PRESSURE INCREASED
     Route: 048
     Dates: start: 2008
  3. METOPROLOL SUCCINATE. [Suspect]
     Active Substance: METOPROLOL SUCCINATE
     Indication: BLOOD PRESSURE INCREASED
     Route: 048
  4. METOPROLOL SUCCINATE. [Suspect]
     Active Substance: METOPROLOL SUCCINATE
     Indication: BLOOD PRESSURE INCREASED
     Route: 048
     Dates: start: 2006
  5. VALTRAX [Concomitant]

REACTIONS (11)
  - Constipation [Unknown]
  - Off label use [Unknown]
  - Hypertension [Unknown]
  - Asthma exercise induced [Unknown]
  - Eczema [Not Recovered/Not Resolved]
  - Rash [Unknown]
  - Weight increased [Unknown]
  - Headache [Unknown]
  - Skin exfoliation [Unknown]
  - Skin discolouration [Not Recovered/Not Resolved]
  - Drug hypersensitivity [Unknown]

NARRATIVE: CASE EVENT DATE: 2009
